FAERS Safety Report 7118706-2 (Version None)
Quarter: 2010Q4

REPORT INFORMATION
  Report Type: 
  Country: None (occurrence: None)
  Receive Date: 20101123
  Receipt Date: 20101111
  Transmission Date: 20110411
  Serious: Yes (Other)
  Sender: FDA-Public Use
  Company Number: US-PFIZER INC-2010148034

PATIENT
  Sex: Female
  Weight: 68.038 kg

DRUGS (3)
  1. PRISTIQ [Suspect]
     Indication: DEPRESSION
     Dosage: 50 MG, 1X/DAY
     Route: 048
     Dates: start: 20101011
  2. ESTRADIOL [Concomitant]
     Indication: HORMONE REPLACEMENT THERAPY
     Dosage: 1 MG, UNK
  3. MULTI-VITAMINS [Concomitant]
     Dosage: UNK

REACTIONS (6)
  - ALOPECIA [None]
  - ANXIETY [None]
  - DEPRESSION [None]
  - MUSCLE SPASMS [None]
  - PRURITUS [None]
  - RESTLESS LEGS SYNDROME [None]
